FAERS Safety Report 12700978 (Version 1)
Quarter: 2016Q3

REPORT INFORMATION
  Report Type: Spontaneous
  Country: US (occurrence: None)
  Receive Date: 20160830
  Receipt Date: 20160830
  Transmission Date: 20161109
  Serious: Yes (Other)
  Sender: FDA-Public Use
  Company Number: None

PATIENT
  Age: 66 Year
  Sex: Female
  Weight: 102.06 kg

DRUGS (10)
  1. JANUVIA [Concomitant]
     Active Substance: SITAGLIPTIN PHOSPHATE
  2. LIPITOR [Concomitant]
     Active Substance: ATORVASTATIN CALCIUM
  3. METFORMIN [Concomitant]
     Active Substance: METFORMIN HYDROCHLORIDE
  4. LOSARTON [Concomitant]
  5. GABAPENTIN. [Concomitant]
     Active Substance: GABAPENTIN
  6. PRAMIPREXOLE [Concomitant]
     Active Substance: PRAMIPEXOLE
  7. VICTOZA [Suspect]
     Active Substance: LIRAGLUTIDE
     Indication: DIABETES MELLITUS
     Dosage: 12.5 INJECTION(S) ONCE A DAY GIVEN INTO/UNDER THE SKIN
     Route: 058
     Dates: start: 20151208, end: 20160318
  8. LANTUS [Concomitant]
     Active Substance: INSULIN GLARGINE
  9. GLIPIZIDE. [Concomitant]
     Active Substance: GLIPIZIDE
  10. METOPROLOL. [Concomitant]
     Active Substance: METOPROLOL

REACTIONS (4)
  - Constipation [None]
  - Vomiting [None]
  - Gastric disorder [None]
  - Eructation [None]

NARRATIVE: CASE EVENT DATE: 20160315
